FAERS Safety Report 8252877-X (Version None)
Quarter: 2012Q2

REPORT INFORMATION
  Report Type: 
  Country: None (occurrence: None)
  Receive Date: 20120402
  Receipt Date: 20120112
  Transmission Date: 20120825
  Serious: No
  Sender: FDA-Public Use
  Company Number: US-ABBOTT-12P-163-0892713-00

PATIENT
  Sex: Male
  Weight: 90.346 kg

DRUGS (13)
  1. HYZAAR [Concomitant]
     Indication: HYPERTENSION
  2. ASACOL [Concomitant]
     Indication: DIARRHOEA
  3. ALPRAZOLAM [Concomitant]
     Indication: SLEEP DISORDER
  4. MULTI-VITAMINS [Concomitant]
     Indication: PRODUCT USED FOR UNKNOWN INDICATION
  5. VITAMIN D [Concomitant]
     Indication: PRODUCT USED FOR UNKNOWN INDICATION
  6. ASCORBIC ACID [Concomitant]
     Indication: PRODUCT USED FOR UNKNOWN INDICATION
  7. CYCLOBENZAPRINE HCL [Concomitant]
     Indication: BACK PAIN
  8. ANDROGEL [Suspect]
     Indication: BLOOD TESTOSTERONE DECREASED
     Dates: start: 20110801
  9. DOXYCYCLINE [Concomitant]
     Indication: ROSACEA
  10. FUROSEMIDE [Concomitant]
     Indication: DIURETIC THERAPY
  11. CRESTOR [Concomitant]
     Indication: BLOOD CHOLESTEROL INCREASED
  12. FENTANYL [Concomitant]
     Indication: PAIN
     Dosage: PATCH
  13. ASPIRIN [Concomitant]
     Indication: PRODUCT USED FOR UNKNOWN INDICATION

REACTIONS (1)
  - TESTICULAR ATROPHY [None]
